FAERS Safety Report 12529700 (Version 1)
Quarter: 2016Q3

REPORT INFORMATION
  Report Type: Spontaneous
  Country: AU (occurrence: AU)
  Receive Date: 20160706
  Receipt Date: 20160706
  Transmission Date: 20161109
  Serious: Yes (Hospitalization, Other)
  Sender: FDA-Public Use
  Company Number: AU-ACCORD-042062

PATIENT
  Age: 53 Year
  Sex: Female

DRUGS (4)
  1. FLUOROURACIL. [Suspect]
     Active Substance: FLUOROURACIL
     Indication: RECTAL ADENOCARCINOMA
     Dosage: 12 CYCLES
  2. CAPECITABINE. [Suspect]
     Active Substance: CAPECITABINE
     Indication: RECTAL ADENOCARCINOMA
     Dosage: ALSO RECEIVED 2000 MG TWICE A DAY FOR EIGHT CYCLES (6 MONTHS) AS AN ADJUVANT THERAPY
  3. FOLINIC ACID [Concomitant]
     Active Substance: LEUCOVORIN
     Indication: RECTAL ADENOCARCINOMA
     Dosage: 12 CYCLES
  4. OXALIPLATIN. [Suspect]
     Active Substance: OXALIPLATIN
     Indication: RECTAL ADENOCARCINOMA
     Dosage: 12 CYCLES

REACTIONS (2)
  - Acute promyelocytic leukaemia [Recovered/Resolved]
  - Myelofibrosis [Recovered/Resolved]

NARRATIVE: CASE EVENT DATE: 201404
